FAERS Safety Report 15291767 (Version 1)
Quarter: 2018Q3

REPORT INFORMATION
  Report Type: Spontaneous
  Country: US (occurrence: US)
  Receive Date: 20180817
  Receipt Date: 20180817
  Transmission Date: 20181010
  Serious: No
  Sender: FDA-Public Use
  Company Number: US-009507513-1808USA003484

PATIENT
  Age: 64 Year
  Sex: Female

DRUGS (3)
  1. BELSOMRA [Suspect]
     Active Substance: SUVOREXANT
     Dosage: 10 MG, DAILY
     Route: 048
     Dates: start: 201807, end: 2018
  2. BELSOMRA [Suspect]
     Active Substance: SUVOREXANT
     Dosage: 2 BELSOMRA 10 MG TABLET
     Route: 048
     Dates: start: 2018, end: 2018
  3. BELSOMRA [Suspect]
     Active Substance: SUVOREXANT
     Indication: SHIFT WORK DISORDER
     Dosage: 20 MG, QD
     Route: 048
     Dates: start: 20180806

REACTIONS (6)
  - Wrong technique in product usage process [Unknown]
  - Drug dose omission [Unknown]
  - Drug ineffective for unapproved indication [Recovered/Resolved]
  - Drug effective for unapproved indication [Unknown]
  - Product physical issue [Unknown]
  - Product colour issue [Unknown]

NARRATIVE: CASE EVENT DATE: 2018
